FAERS Safety Report 8355403-X (Version None)
Quarter: 2012Q2

REPORT INFORMATION
  Report Type: 
  Country: None (occurrence: None)
  Receive Date: 20120511
  Receipt Date: 20110406
  Transmission Date: 20120825
  Serious: No
  Sender: FDA-Public Use
  Company Number: US-TEVA-2011001698

PATIENT
  Sex: Female
  Weight: 78.542 kg

DRUGS (2)
  1. NUVIGIL [Suspect]
     Indication: DEPRESSION
     Dosage: 150 MILLIGRAM;
     Route: 048
     Dates: start: 20090101, end: 20090101
  2. NUVIGIL [Suspect]
     Indication: FATIGUE

REACTIONS (3)
  - HYPERVIGILANCE [None]
  - DEPRESSION [None]
  - ABDOMINAL DISCOMFORT [None]
